FAERS Safety Report 9414938 (Version 1)
Quarter: 2013Q3

REPORT INFORMATION
  Report Type: Spontaneous
  Country: US (occurrence: US)
  Receive Date: 20130723
  Receipt Date: 20130723
  Transmission Date: 20140515
  Serious: Yes (Hospitalization)
  Sender: FDA-Public Use
  Company Number: US-BAYER-2013-088648

PATIENT
  Age: 25 Year
  Sex: Female

DRUGS (8)
  1. YAZ [Suspect]
  2. GIANVI [Suspect]
     Dosage: UNK
  3. PROAIR HFA [Concomitant]
     Dosage: UNK
     Dates: start: 20130212
  4. FLOVENT [Concomitant]
     Dosage: UNK
     Dates: start: 20130212
  5. FLUTICASONE [Concomitant]
  6. VENTOLIN [Concomitant]
  7. ALBUTEROL [Concomitant]
  8. STEROID ANTIBACTERIALS [Concomitant]
     Route: 045

REACTIONS (1)
  - Pulmonary embolism [None]
